FAERS Safety Report 19637012 (Version 2)
Quarter: 2022Q1

REPORT INFORMATION
  Report Type: Spontaneous
  Country: US (occurrence: US)
  Receive Date: 20210730
  Receipt Date: 20220301
  Transmission Date: 20220423
  Serious: No
  Sender: FDA-Public Use
  Company Number: US-PFIZER INC-2021513928

PATIENT
  Age: 57 Year
  Sex: Male

DRUGS (2)
  1. XELJANZ [Suspect]
     Active Substance: TOFACITINIB CITRATE
     Indication: Rheumatoid arthritis
     Dosage: 5 MG, 2X/DAY (XELJANZ 5MG TWICE DAILY)
  2. XELJANZ [Suspect]
     Active Substance: TOFACITINIB CITRATE
     Dosage: 5 MG, DAILY
     Route: 048
     Dates: start: 202104

REACTIONS (7)
  - Intentional product misuse [Unknown]
  - Gastrooesophageal reflux disease [Recovering/Resolving]
  - Skin burning sensation [Unknown]
  - Erythema [Unknown]
  - Pruritus [Unknown]
  - Joint swelling [Unknown]
  - Rash [Unknown]

NARRATIVE: CASE EVENT DATE: 20210101
